FAERS Safety Report 8533172 (Version 4)
Quarter: 2012Q4

REPORT INFORMATION
  Report Type: 
  Country: US (occurrence: US)
  Receive Date: 20120427
  Receipt Date: 20121001
  Transmission Date: 20130627
  Serious: Yes (Hospitalization)
  Sender: FDA-Public Use
  Company Number: US-BAYER-2012-039293

PATIENT
  Age: 32 Year
  Sex: Female
  Weight: 121.54 kg

DRUGS (4)
  1. YAZ [Suspect]
     Indication: CONTRACEPTION
     Dosage: UNK
     Dates: start: 20100829, end: 20101212
  2. YAZ [Suspect]
     Indication: CONTRACEPTION
     Dosage: UNK
  3. ZOFRAN [Concomitant]
  4. CLARITHROMYCIN [Concomitant]
     Dosage: 500 mg, UNK

REACTIONS (12)
  - Pulmonary embolism [Recovered/Resolved]
  - Pain [None]
  - Injury [None]
  - General physical health deterioration [None]
  - Anxiety [None]
  - Emotional distress [None]
  - Rash [Recovered/Resolved]
  - Pain in extremity [None]
  - Dyspnoea [Recovered/Resolved]
  - Fatigue [Recovered/Resolved]
  - Anxiety [None]
  - Coagulopathy [None]
